FAERS Safety Report 4808948-0 (Version None)
Quarter: 2005Q4

REPORT INFORMATION
  Report Type: 
  Country: None (occurrence: None)
  Receive Date: 20051025
  Receipt Date: 20030324
  Transmission Date: 20060501
  Serious: Yes (Death)
  Sender: FDA-Public Use
  Company Number: US-BRISTOL-MYERS SQUIBB COMPANY-12195301

PATIENT
  Age: 52 Year
  Sex: Female

DRUGS (4)
  1. CETUXIMAB [Suspect]
     Indication: NON-SMALL CELL LUNG CANCER STAGE IV
     Dosage: 400 MG/250 MG/M2
     Route: 042
     Dates: start: 20020415, end: 20020821
  2. PACLITAXEL [Suspect]
     Indication: NON-SMALL CELL LUNG CANCER STAGE IV
     Route: 042
     Dates: start: 20020415, end: 20020821
  3. CARBOPLATIN [Suspect]
     Indication: NON-SMALL CELL LUNG CANCER STAGE IV
     Route: 042
     Dates: start: 20020415, end: 20020821
  4. ROXANOL [Concomitant]
     Indication: PAIN
     Dosage: 10-20 MG PO OR SL Q 1-2 HOURS AS NEEDED
     Route: 048
     Dates: start: 20020831, end: 20020901

REACTIONS (1)
  - MALIGNANT NEOPLASM PROGRESSION [None]
